FAERS Safety Report 7457271-7 (Version None)
Quarter: 2011Q2

REPORT INFORMATION
  Report Type: 
  Country: None (occurrence: None)
  Receive Date: 20110426
  Receipt Date: 20110328
  Transmission Date: 20111010
  Serious: Yes (Hospitalization, Other)
  Sender: FDA-Public Use
  Company Number: ACO_23010_2011

PATIENT
  Age: 59 Year
  Sex: Male

DRUGS (5)
  1. BACLOFEN [Suspect]
     Indication: PRODUCT USED FOR UNKNOWN INDICATION
     Dosage: 40 MG, EVERY 6 HOURS
  2. ANTIBIOTICS [Concomitant]
  3. TIZANIDINE HYDROCHLORIDE [Suspect]
     Indication: PRODUCT USED FOR UNKNOWN INDICATION
     Dosage: 6 MG, QD
  4. MUSCLE RELAXANTS [Concomitant]
  5. HALOPERIDOL [Concomitant]

REACTIONS (19)
  - COGWHEEL RIGIDITY [None]
  - TACHYCARDIA [None]
  - PYREXIA [None]
  - MOTOR DYSFUNCTION [None]
  - DELIRIUM [None]
  - HALLUCINATION, VISUAL [None]
  - BLOOD PRESSURE DECREASED [None]
  - RENAL FAILURE ACUTE [None]
  - EXTRAPYRAMIDAL DISORDER [None]
  - BLOOD PRESSURE INCREASED [None]
  - AGITATION [None]
  - NAUSEA [None]
  - CONFUSIONAL STATE [None]
  - DISORIENTATION [None]
  - RENAL TUBULAR NECROSIS [None]
  - DRUG WITHDRAWAL SYNDROME [None]
  - AUTONOMIC NERVOUS SYSTEM IMBALANCE [None]
  - VOMITING [None]
  - HYPOPHAGIA [None]
